FAERS Safety Report 4986241-3 (Version None)
Quarter: 2006Q2

REPORT INFORMATION
  Report Type: 
  Country: None (occurrence: None)
  Receive Date: 20060428
  Receipt Date: 20051004
  Transmission Date: 20061013
  Serious: Yes (Hospitalization)
  Sender: FDA-Public Use
  Company Number: US-MERCK-0510USA03482

PATIENT
  Age: 69 Year
  Sex: Male
  Weight: 87 kg

DRUGS (3)
  1. VIOXX [Suspect]
     Indication: MONARTHRITIS
     Route: 048
     Dates: start: 20020301, end: 20031201
  2. ALEVE [Concomitant]
     Route: 065
  3. ERYTHROMYCIN [Concomitant]
     Route: 065

REACTIONS (16)
  - ANXIETY [None]
  - BLINDNESS [None]
  - CEREBRAL THROMBOSIS [None]
  - CHRONIC OBSTRUCTIVE PULMONARY DISEASE [None]
  - DIZZINESS [None]
  - DYSPNOEA EXERTIONAL [None]
  - HEADACHE [None]
  - HYPOAESTHESIA [None]
  - HYPOKINESIA [None]
  - MIGRAINE [None]
  - MOVEMENT DISORDER [None]
  - NAUSEA [None]
  - PERITONEAL LESION [None]
  - PROSTATE CANCER [None]
  - URINARY TRACT INFECTION [None]
  - VISION BLURRED [None]
